FAERS Safety Report 23868825 (Version 1)
Quarter: 2024Q2

REPORT INFORMATION
  Report Type: Spontaneous
  Country: US (occurrence: US)
  Receive Date: 20240517
  Receipt Date: 20240517
  Transmission Date: 20240716
  Serious: No
  Sender: FDA-Public Use
  Company Number: US-BIOVITRUM-2024-US-007282

PATIENT
  Sex: Male
  Weight: 10.6 kg

DRUGS (2)
  1. SYNAGIS [Suspect]
     Active Substance: PALIVIZUMAB
     Indication: Antiviral prophylaxis
     Dosage: 15 MG/KG ONCE MONTHLY
     Route: 030
  2. POLY-VI-SOL WITHI RON [Concomitant]
     Indication: Product used for unknown indication

REACTIONS (1)
  - Illness [Unknown]
